FAERS Safety Report 13187485 (Version 4)
Quarter: 2019Q4

REPORT INFORMATION
  Report Type: Spontaneous
  Country: US (occurrence: US)
  Receive Date: 20170206
  Receipt Date: 20191122
  Transmission Date: 20200122
  Serious: No
  Sender: FDA-Public Use
  Company Number: US-PFIZER INC-2017045102

PATIENT
  Age: 71 Year
  Sex: Male
  Weight: 97.52 kg

DRUGS (6)
  1. CHANTIX [Suspect]
     Active Substance: VARENICLINE TARTRATE
     Indication: SMOKING CESSATION THERAPY
     Dosage: 2 MG, DAILY (1 MG TABLET AT 1 DOSAGE FORM IN THE MORNING AND 1 DOSAGE FORM IN THE EVENING)
     Route: 048
     Dates: start: 201612, end: 20170123
  2. ATENOLOL. [Concomitant]
     Active Substance: ATENOLOL
     Indication: BLOOD PRESSURE ABNORMAL
     Dosage: 0.25 MG, 1X/DAY (0.25 MG 1 DAY BY MOUTH)
     Route: 048
     Dates: start: 2002
  3. ALLOPURINOL. [Concomitant]
     Active Substance: ALLOPURINOL
     Indication: GOUT
     Dosage: 100 MG, 1X/DAY
     Route: 048
  4. ALLOPURINOL. [Concomitant]
     Active Substance: ALLOPURINOL
     Dosage: UNK
  5. ATENOLOL. [Concomitant]
     Active Substance: ATENOLOL
     Indication: CHEST PAIN
     Dosage: 25 MG, 1X/DAY
     Route: 048
     Dates: start: 2003
  6. AMLODIPINE [Concomitant]
     Active Substance: AMLODIPINE BESYLATE
     Indication: BLOOD PRESSURE ABNORMAL
     Dosage: 10 MG, 1X/DAY
     Route: 048

REACTIONS (6)
  - Agitation [Recovered/Resolved]
  - Chronic obstructive pulmonary disease [Unknown]
  - Aggression [Recovered/Resolved]
  - Anger [Recovered/Resolved]
  - Blood pressure decreased [Recovered/Resolved]
  - Abnormal dreams [Unknown]

NARRATIVE: CASE EVENT DATE: 201612
